FAERS Safety Report 9769147 (Version 1)
Quarter: 2013Q4

REPORT INFORMATION
  Report Type: Spontaneous
  Country: US (occurrence: US)
  Receive Date: 20131218
  Receipt Date: 20131218
  Transmission Date: 20140711
  Serious: Yes (Hospitalization)
  Sender: FDA-Public Use
  Company Number: US-SA-2013SA131687

PATIENT
  Age: 52 Year
  Sex: Male

DRUGS (1)
  1. LANTUS [Suspect]
     Dosage: DOSE - 30 UNITS IN AM AND 55 UNITS IN PM
     Route: 051

REACTIONS (2)
  - Arthropathy [Unknown]
  - Drug dose omission [Unknown]
